FAERS Safety Report 13031174 (Version 1)
Quarter: 2016Q4

REPORT INFORMATION
  Report Type: Spontaneous
  Country: CA (occurrence: CA)
  Receive Date: 20161215
  Receipt Date: 20161215
  Transmission Date: 20170207
  Serious: Yes (Death, Hospitalization)
  Sender: FDA-Public Use
  Company Number: CA-CELLTRION INC.-2016CA013355

PATIENT

DRUGS (9)
  1. ACICLOVIR [Concomitant]
     Active Substance: ACYCLOVIR
     Route: 042
  2. VENLAFAXINE [Concomitant]
     Active Substance: VENLAFAXINE HYDROCHLORIDE
  3. INFLIXIMAB HOSPIRA [Suspect]
     Active Substance: INFLIXIMAB
     Indication: CROHN^S DISEASE
     Dosage: 300 MG
     Route: 065
  4. PANTOPRAZOLE [Concomitant]
     Active Substance: PANTOPRAZOLE SODIUM
     Route: 041
  5. AZATHIOPRINE. [Concomitant]
     Active Substance: AZATHIOPRINE
  6. PREDNISONE. [Concomitant]
     Active Substance: PREDNISONE
  7. NORGESTIMATE AND ETHINYL ESTRADIOL [Concomitant]
     Active Substance: ETHINYL ESTRADIOL\NORGESTIMATE
  8. ACETAMINOPHEN. [Concomitant]
     Active Substance: ACETAMINOPHEN
  9. MEROPENEM. [Concomitant]
     Active Substance: MEROPENEM

REACTIONS (2)
  - Herpes virus infection [Fatal]
  - Hepatitis fulminant [Fatal]
